FAERS Safety Report 10629605 (Version 1)
Quarter: 2014Q4

REPORT INFORMATION
  Report Type: Spontaneous
  Country: US (occurrence: US)
  Receive Date: 20141205
  Receipt Date: 20141205
  Transmission Date: 20150529
  Serious: No
  Sender: FDA-Public Use
  Company Number: US-BRISTOL-MYERS SQUIBB COMPANY-21457528

PATIENT
  Age: 8 Year
  Sex: Male
  Weight: 33.56 kg

DRUGS (4)
  1. ABILIFY [Suspect]
     Active Substance: ARIPIPRAZOLE
     Indication: TIC
     Dosage: CURRENTLY TAKING 10 MG SWITCHED 3 WEEKS AGO FROM 5 MG
     Dates: start: 201403
  2. MULTIVITAMIN [Concomitant]
     Active Substance: VITAMINS
  3. PROZAC [Concomitant]
     Active Substance: FLUOXETINE HYDROCHLORIDE
  4. ABILIFY [Suspect]
     Active Substance: ARIPIPRAZOLE
     Indication: IRRITABILITY
     Dosage: CURRENTLY TAKING 10 MG SWITCHED 3 WEEKS AGO FROM 5 MG
     Dates: start: 201403

REACTIONS (1)
  - Fatigue [Unknown]
